FAERS Safety Report 11800323 (Version 1)
Quarter: 2015Q4

REPORT INFORMATION
  Report Type: Spontaneous
  Country: US (occurrence: US)
  Receive Date: 20151203
  Receipt Date: 20151203
  Transmission Date: 20160305
  Serious: Yes (Other)
  Sender: FDA-Public Use
  Company Number: US-SPECTRUM PHARMACEUTICALS, INC.-15-F-US-00278

PATIENT
  Sex: Male
  Weight: 87 kg

DRUGS (2)
  1. FOLOTYN [Suspect]
     Active Substance: PRALATREXATE
     Indication: PERIPHERAL T-CELL LYMPHOMA UNSPECIFIED
     Dosage: 30 MG/M2, SINGLE
     Route: 065
     Dates: start: 20150605, end: 20150605
  2. FOLOTYN [Suspect]
     Active Substance: PRALATREXATE
     Dosage: 30 MG/M2, SINGLE
     Route: 065
     Dates: start: 20150612, end: 20150612

REACTIONS (1)
  - Mucosal inflammation [Not Recovered/Not Resolved]
